FAERS Safety Report 4429409-7 (Version None)
Quarter: 2004Q3

REPORT INFORMATION
  Report Type: 
  Country: None (occurrence: None)
  Receive Date: 20040816
  Receipt Date: 20040802
  Transmission Date: 20050211
  Serious: Yes (Hospitalization)
  Sender: FDA-Public Use
  Company Number: 2004048021

PATIENT
  Age: 51 Year
  Sex: Female
  Weight: 38 kg

DRUGS (8)
  1. ZITHROMAX [Suspect]
     Indication: ILL-DEFINED DISORDER
     Dosage: 500 MG, ORAL
     Dates: start: 20040625, end: 20040101
  2. WARFARIN SODIUM [Suspect]
     Indication: ILL-DEFINED DISORDER
     Dosage: 2.5 MG (1 IN 1 D), ORAL
     Route: 048
  3. LOXOPROFEN SODIUM (LOXOPROFEN SODIUM) [Suspect]
     Indication: ILL-DEFINED DISORDER
     Dosage: ORAL
     Route: 048
     Dates: start: 20040703
  4. VALPROATE SODIUM [Concomitant]
  5. ACETYLSALICYLIC ACID [Concomitant]
  6. FAMOTIDINE [Concomitant]
  7. DIGOXIN [Concomitant]
  8. FUROSEMIDE [Concomitant]

REACTIONS (3)
  - ANAEMIA [None]
  - DRUG INTERACTION [None]
  - SUBCUTANEOUS HAEMATOMA [None]
